FAERS Safety Report 6546950-1 (Version None)
Quarter: 2010Q1

REPORT INFORMATION
  Report Type: 
  Country: None (occurrence: None)
  Receive Date: 20100122
  Receipt Date: 20091201
  Transmission Date: 20100710
  Serious: Yes (Hospitalization)
  Sender: FDA-Public Use
  Company Number: A0832044A

PATIENT
  Age: 63 Year
  Sex: Female

DRUGS (13)
  1. AVANDIA [Suspect]
     Dosage: 8MG PER DAY
     Route: 048
     Dates: end: 20070601
  2. FLOVENT [Concomitant]
  3. SYNTHROID [Concomitant]
  4. ASPIRIN [Concomitant]
  5. TOPROL-XL [Concomitant]
  6. TAMOXIFEN CITRATE [Concomitant]
  7. LISINOPRIL [Concomitant]
  8. TRICOR [Concomitant]
  9. INSULIN [Concomitant]
  10. PROTONIX [Concomitant]
  11. LEXAPRO [Concomitant]
  12. ARIMIDEX [Concomitant]
  13. IMDUR [Concomitant]

REACTIONS (7)
  - BLINDNESS [None]
  - CARDIAC DISORDER [None]
  - CORONARY ARTERY DISEASE [None]
  - EYE INJURY [None]
  - INTRAOCULAR LENS IMPLANT [None]
  - MYOCARDIAL INFARCTION [None]
  - MYOCARDIAL ISCHAEMIA [None]
